FAERS Safety Report 5208939-4 (Version None)
Quarter: 2007Q1

REPORT INFORMATION
  Report Type: 
  Country: None (occurrence: None)
  Receive Date: 20070111
  Receipt Date: 20070111
  Transmission Date: 20070707
  Serious: Yes (Hospitalization)
  Sender: FDA-Public Use
  Company Number: None

PATIENT
  Age: 57 Year
  Sex: Male
  Weight: 69.2 kg

DRUGS (7)
  1. VALPROIC ACID [Suspect]
     Indication: BIPOLAR DISORDER
     Dosage: 500MG TID
     Dates: start: 20021201, end: 20070101
  2. CLONAZEPAM [Concomitant]
  3. PAROXETINE HCL [Concomitant]
  4. PSYLLIUM [Concomitant]
  5. OLANZAPINE [Concomitant]
  6. SYNTHROID [Concomitant]
  7. SIMVASTATIN [Concomitant]

REACTIONS (1)
  - MENTAL STATUS CHANGES [None]
